FAERS Safety Report 12171855 (Version 1)
Quarter: 2016Q1

REPORT INFORMATION
  Report Type: Spontaneous
  Country: US (occurrence: US)
  Receive Date: 20160311
  Receipt Date: 20160311
  Transmission Date: 20160526
  Serious: No
  Sender: FDA-Public Use
  Company Number: US-GALDERMA-US16000651

PATIENT
  Age: 41 Year
  Sex: Female

DRUGS (2)
  1. ORACEA [Concomitant]
     Active Substance: DOXYCYCLINE
     Indication: PRODUCT USED FOR UNKNOWN INDICATION
     Dosage: 40 MG
     Route: 048
     Dates: start: 201601, end: 201601
  2. MIRVASO [Suspect]
     Active Substance: BRIMONIDINE TARTRATE
     Indication: ROSACEA
     Dosage: 0.33%
     Route: 061
     Dates: start: 201601, end: 201601

REACTIONS (3)
  - Pruritus [Unknown]
  - Acne [Unknown]
  - Papule [Unknown]

NARRATIVE: CASE EVENT DATE: 201601
